FAERS Safety Report 14735354 (Version 2)
Quarter: 2019Q2

REPORT INFORMATION
  Report Type: Report from Study
  Country: US (occurrence: US)
  Receive Date: 20180409
  Receipt Date: 20190502
  Transmission Date: 20190711
  Serious: No
  Sender: FDA-Public Use
  Company Number: US-RETROPHIN, INC.-2018RTN00010

PATIENT
  Sex: Male
  Weight: 9.78 kg

DRUGS (4)
  1. CHOLBAM [Suspect]
     Active Substance: CHOLIC ACID
     Dosage: 50-100 MG, AS DIRECTED (TAKES 50 MG EVERY OTHER DAY, ALTERNATING WITH 100 MG)
     Route: 048
     Dates: start: 201807
  2. TRI VI SOL [Concomitant]
     Dosage: UNK, 1X/DAY
     Route: 048
  3. CHOLBAM [Suspect]
     Active Substance: CHOLIC ACID
     Indication: INBORN ERROR IN PRIMARY BILE ACID SYNTHESIS
     Dosage: 100 MG, 1X/DAY
     Route: 048
     Dates: start: 20171003
  4. CHOLBAM [Suspect]
     Active Substance: CHOLIC ACID
     Dosage: 75 MG, 1X/DAY
     Route: 048
     Dates: end: 201807

REACTIONS (1)
  - Ear infection [Unknown]
